FAERS Safety Report 25146457 (Version 3)
Quarter: 2025Q3

REPORT INFORMATION
  Report Type: Report from Study
  Country: US (occurrence: US)
  Receive Date: 20250401
  Receipt Date: 20250810
  Transmission Date: 20251020
  Serious: Yes (Other)
  Sender: ALEXION PHARMACEUTICALS
  Company Number: US-AstraZeneca-CH-00838675A

PATIENT
  Sex: Female

DRUGS (1)
  1. ALBUTEROL\BUDESONIDE [Suspect]
     Active Substance: ALBUTEROL\BUDESONIDE
     Route: 065

REACTIONS (3)
  - Metastatic neoplasm [Unknown]
  - Inability to afford medication [Unknown]
  - Metastases to central nervous system [Unknown]
